FAERS Safety Report 18273195 (Version 1)
Quarter: 2020Q3

REPORT INFORMATION
  Report Type: Other
  Country: IT (occurrence: IT)
  Receive Date: 20200916
  Receipt Date: 20200916
  Transmission Date: 20201103
  Serious: Yes (Other)
  Sender: FDA-Public Use
  Company Number: IT-ROCHE-2676672

PATIENT

DRUGS (1)
  1. RITUXIMAB. [Suspect]
     Active Substance: RITUXIMAB
     Indication: PEMPHIGUS
     Route: 042

REACTIONS (4)
  - Atrial fibrillation [Unknown]
  - Pulmonary embolism [Unknown]
  - Headache [Unknown]
  - Cytokine release syndrome [Unknown]
